FAERS Safety Report 25674074 (Version 2)
Quarter: 2025Q4

REPORT INFORMATION
  Report Type: Spontaneous
  Country: US (occurrence: US)
  Receive Date: 20250813
  Receipt Date: 20251009
  Transmission Date: 20260118
  Serious: Yes (Death)
  Sender: CSL BEHRING
  Company Number: US-BEH-2025215473

PATIENT
  Age: 77 Year
  Sex: Female

DRUGS (2)
  1. HIZENTRA [Suspect]
     Active Substance: HUMAN IMMUNOGLOBULIN G
     Indication: Immunodeficiency common variable
     Dosage: 10 G, QW
     Route: 058
     Dates: start: 202505
  2. EPINEPHRINE [Concomitant]
     Active Substance: EPINEPHRINE

REACTIONS (1)
  - Death [Fatal]

NARRATIVE: CASE EVENT DATE: 20250803
